FAERS Safety Report 7800941-9 (Version None)
Quarter: 2011Q4

REPORT INFORMATION
  Report Type: 
  Country: None (occurrence: None)
  Receive Date: 20111006
  Receipt Date: 20110208
  Transmission Date: 20120403
  Serious: No
  Sender: FDA-Public Use
  Company Number: US-BAYER-2011-012797

PATIENT
  Sex: Female
  Weight: 160 kg

DRUGS (1)
  1. CIPRO [Suspect]

REACTIONS (1)
  - DRUG HYPERSENSITIVITY [None]
